FAERS Safety Report 5309595-7 (Version None)
Quarter: 2007Q2

REPORT INFORMATION
  Report Type: 
  Country: None (occurrence: None)
  Receive Date: 20070424
  Receipt Date: 20070413
  Transmission Date: 20071010
  Serious: Yes (Other)
  Sender: FDA-Public Use
  Company Number: 232412K07USA

PATIENT
  Age: 50 Year
  Sex: Female
  Weight: 68.0396 kg

DRUGS (1)
  1. REBIF [Suspect]
     Indication: MULTIPLE SCLEROSIS
     Dosage: 44 MCG, 3 IN 1 WEEKS, SUBCUTANEOUS
     Route: 058
     Dates: start: 20060919, end: 20070403

REACTIONS (5)
  - BREAST CANCER FEMALE [None]
  - INJECTION SITE PAIN [None]
  - NO THERAPEUTIC RESPONSE [None]
  - THYROID CANCER [None]
  - THYROID NEOPLASM [None]
